FAERS Safety Report 19511353 (Version 1)
Quarter: 2021Q3

REPORT INFORMATION
  Report Type: Spontaneous
  Country: US (occurrence: US)
  Receive Date: 20210708
  Receipt Date: 20210708
  Transmission Date: 20211014
  Serious: Yes (Death, Disabling, Congenital Anomaly, Other)
  Sender: FDA-Public Use
  Company Number: None

PATIENT
  Age: 56 Year
  Sex: Female
  Weight: 113.4 kg

DRUGS (1)
  1. METRONIDAZOLE. [Suspect]
     Active Substance: METRONIDAZOLE
     Indication: BACTERIAL INFECTION

REACTIONS (14)
  - Illness [None]
  - Parosmia [None]
  - Agitation [None]
  - Aggression [None]
  - Physical abuse [None]
  - Abortion [None]
  - Emotional distress [None]
  - Sexually transmitted disease [None]
  - Exposure via partner [None]
  - Inability to afford medication [None]
  - Skin odour abnormal [None]
  - Overdose [None]
  - Feeling guilty [None]
  - Near death experience [None]

NARRATIVE: CASE EVENT DATE: 19900101
